FAERS Safety Report 8515606-8 (Version None)
Quarter: 2012Q3

REPORT INFORMATION
  Report Type: 
  Country: None (occurrence: None)
  Receive Date: 20120717
  Receipt Date: 20120711
  Transmission Date: 20120928
  Serious: Yes (Other)
  Sender: FDA-Public Use
  Company Number: PHHY2012CA028696

PATIENT
  Sex: Female

DRUGS (2)
  1. ZOLEDRONOC ACID [Suspect]
     Indication: OSTEOPOROSIS
     Dosage: UNK UKN, UNK
     Route: 042
     Dates: start: 20120320
  2. DIURETICS [Concomitant]

REACTIONS (4)
  - ABSCESS [None]
  - RASH PRURITIC [None]
  - TOOTH FRACTURE [None]
  - ENAMEL ANOMALY [None]
